FAERS Safety Report 5219279-1 (Version None)
Quarter: 2007Q1

REPORT INFORMATION
  Report Type: 
  Country: None (occurrence: None)
  Receive Date: 20070125
  Receipt Date: 20070123
  Transmission Date: 20070707
  Serious: Yes (Other)
  Sender: FDA-Public Use
  Company Number: US-JNJFOC-20061104351

PATIENT
  Sex: Female
  Weight: 53.52 kg

DRUGS (3)
  1. ELMIRON [Suspect]
     Indication: CYSTITIS INTERSTITIAL
     Route: 048
     Dates: start: 19900101
  2. DETROL LA [Concomitant]
     Indication: MICTURITION URGENCY
  3. DETROL LA [Concomitant]
     Indication: BLADDER SPASM

REACTIONS (5)
  - BREAST CANCER [None]
  - PANCYTOPENIA [None]
  - PLATELET COUNT DECREASED [None]
  - SPLENOMEGALY [None]
  - WHITE BLOOD CELL COUNT DECREASED [None]
